FAERS Safety Report 4941133-0 (Version None)
Quarter: 2006Q1

REPORT INFORMATION
  Report Type: 
  Country: None (occurrence: None)
  Receive Date: 20060313
  Receipt Date: 20060228
  Transmission Date: 20060701
  Serious: Yes (Hospitalization)
  Sender: FDA-Public Use
  Company Number: JP-JPN-A200600783

PATIENT
  Age: 7 Year

DRUGS (2)
  1. FLUTIDE [Suspect]
     Indication: ASTHMA
     Dosage: 50MCG TWICE PER DAY
     Route: 055
  2. ADRENAL CORTEX EXTRACT [Concomitant]
     Route: 042

REACTIONS (3)
  - CHOLECYSTITIS [None]
  - GLAUCOMA [None]
  - VISION BLURRED [None]
